FAERS Safety Report 5246877-1 (Version None)
Quarter: 2007Q1

REPORT INFORMATION
  Report Type: 
  Country: None (occurrence: None)
  Receive Date: 20070226
  Receipt Date: 20070221
  Transmission Date: 20070707
  Serious: Yes (Life-Threatening, Hospitalization)
  Sender: FDA-Public Use
  Company Number: HQWYE386122FEB07

PATIENT
  Sex: Male
  Weight: 69 kg

DRUGS (4)
  1. GEMTUZUMAB OZOGAMICIN [Suspect]
     Indication: ACUTE MYELOID LEUKAEMIA
     Dosage: SINGLE DOSE: 5.5 MG; CUMULATIVE DOSE: 28.5 MG
     Route: 065
     Dates: start: 20061019, end: 20070109
  2. ETOPOSIDE [Suspect]
     Indication: ACUTE MYELOID LEUKAEMIA
     Dosage: SINGLE DOSE: 190 MG; CUMULATIVE DOSE: 1140 MG
     Route: 065
     Dates: start: 20061203, end: 20061211
  3. IDARUBICIN HCL [Suspect]
     Indication: ACUTE MYELOID LEUKAEMIA
     Dosage: UNKNOWN
     Route: 065
  4. ARACYTIN [Suspect]
     Indication: ACUTE MYELOID LEUKAEMIA
     Dosage: SINGLE DOSE: 190 MG; CUMULATIVE DOSE: 2290 MG
     Route: 065
     Dates: start: 20061203, end: 20070113

REACTIONS (1)
  - INFUSION SITE HAEMORRHAGE [None]
